FAERS Safety Report 5828259-4 (Version None)
Quarter: 2008Q3

REPORT INFORMATION
  Report Type: 
  Country: None (occurrence: None)
  Receive Date: 20080729
  Receipt Date: 20080723
  Transmission Date: 20090109
  Serious: Yes (Other)
  Sender: FDA-Public Use
  Company Number: 2008019292

PATIENT
  Age: 44 Year
  Sex: Female

DRUGS (4)
  1. BENADRYL [Suspect]
     Indication: HYPERSENSITIVITY
     Dosage: 4 TABLESPOONS ONE IN MORNING, ORAL
     Route: 048
     Dates: start: 20080721
  2. ATENOLOL [Concomitant]
  3. WELLBUTRIN XL [Concomitant]
  4. FAMOTIDINE [Concomitant]

REACTIONS (4)
  - DIZZINESS [None]
  - FEELING ABNORMAL [None]
  - MOVEMENT DISORDER [None]
  - SPEECH DISORDER [None]
